FAERS Safety Report 15854918 (Version 2)
Quarter: 2019Q1

REPORT INFORMATION
  Report Type: Spontaneous
  Country: US (occurrence: US)
  Receive Date: 20190122
  Receipt Date: 20190201
  Transmission Date: 20190417
  Serious: No
  Sender: FDA-Public Use
  Company Number: US-SUNOVION-2019SUN000181

PATIENT
  Sex: Female
  Weight: 104.31 kg

DRUGS (1)
  1. LATUDA [Suspect]
     Active Substance: LURASIDONE HYDROCHLORIDE
     Indication: MAJOR DEPRESSION
     Dosage: 20 MG, HS
     Route: 048
     Dates: start: 2016

REACTIONS (3)
  - Fatigue [Unknown]
  - Somnolence [Unknown]
  - Off label use [Unknown]
